FAERS Safety Report 22652210 (Version 1)
Quarter: 2023Q2

REPORT INFORMATION
  Report Type: Report from Study
  Country: GB (occurrence: GB)
  Receive Date: 20230628
  Receipt Date: 20230628
  Transmission Date: 20230721
  Serious: Yes (Other)
  Sender: FDA-Public Use
  Company Number: GB-SEAGEN-2023SGN06008

PATIENT

DRUGS (1)
  1. TISOTUMAB VEDOTIN [Suspect]
     Active Substance: TISOTUMAB VEDOTIN
     Indication: Product used for unknown indication
     Route: 065

REACTIONS (1)
  - Malignant neoplasm progression [Unknown]
